FAERS Safety Report 7545563-2 (Version None)
Quarter: 2011Q2

REPORT INFORMATION
  Report Type: 
  Country: None (occurrence: None)
  Receive Date: 20110613
  Receipt Date: 20110613
  Transmission Date: 20111010
  Serious: Yes (Life-Threatening, Hospitalization)
  Sender: FDA-Public Use
  Company Number: None

PATIENT
  Age: 60 Year
  Sex: Male
  Weight: 75 kg

DRUGS (2)
  1. VANCOMYCIN [Suspect]
     Indication: ARTHRITIS INFECTIVE
     Dosage: 1000 MG BID IV
     Route: 042
     Dates: start: 20110516, end: 20110602
  2. VANCOMYCIN [Suspect]
     Indication: STAPHYLOCOCCAL INFECTION
     Dosage: 1000 MG BID IV
     Route: 042
     Dates: start: 20110516, end: 20110602

REACTIONS (2)
  - PANCYTOPENIA [None]
  - HEPATIC ENZYME INCREASED [None]
